FAERS Safety Report 4847760-3 (Version None)
Quarter: 2005Q4

REPORT INFORMATION
  Report Type: 
  Country: None (occurrence: None)
  Receive Date: 20051205
  Receipt Date: 20051122
  Transmission Date: 20060501
  Serious: Yes (Hospitalization)
  Sender: FDA-Public Use
  Company Number: 8013480

PATIENT
  Age: 43 Year
  Sex: Female

DRUGS (2)
  1. KEPPRA [Suspect]
     Indication: COMPLEX PARTIAL SEIZURES
     Dosage: 3 G/D
     Dates: start: 20050901
  2. TEGRETOL [Concomitant]

REACTIONS (3)
  - COMPLEX PARTIAL SEIZURES [None]
  - DRUG INTOLERANCE [None]
  - HEMIPARESIS [None]
